FAERS Safety Report 23477016 (Version 1)
Quarter: 2024Q1

REPORT INFORMATION
  Report Type: Report from Study
  Country: US (occurrence: US)
  Receive Date: 20240204
  Receipt Date: 20240204
  Transmission Date: 20240409
  Serious: No
  Sender: FDA-Public Use
  Company Number: US-EXELIXIS-CABO-23064993

PATIENT
  Age: 51 Year
  Sex: Female

DRUGS (13)
  1. CABOMETYX [Suspect]
     Active Substance: CABOZANTINIB S-MALATE
     Indication: Leiomyosarcoma
     Dosage: 60 MG, QD
     Dates: start: 20230831, end: 20231024
  2. ARMOUR THYROID [Concomitant]
     Active Substance: THYROID, PORCINE
  3. LEVOTHYROXINE [Concomitant]
     Active Substance: LEVOTHYROXINE\LEVOTHYROXINE SODIUM
  4. PROTONIX [Concomitant]
     Active Substance: PANTOPRAZOLE SODIUM
  5. VITAMIN D2 [Concomitant]
     Active Substance: ERGOCALCIFEROL
  6. FENOFIBRATE [Concomitant]
     Active Substance: FENOFIBRATE
  7. ELIQUIS [Concomitant]
     Active Substance: APIXABAN
  8. OXYCODONE [Concomitant]
     Active Substance: OXYCODONE\OXYCODONE HYDROCHLORIDE
  9. XTAMPZA ER [Concomitant]
     Active Substance: OXYCODONE
  10. LASIX [Concomitant]
     Active Substance: FUROSEMIDE
  11. ZOFRAN [Concomitant]
     Active Substance: ONDANSETRON HYDROCHLORIDE
  12. LUBIPROSTONE [Concomitant]
     Active Substance: LUBIPROSTONE
  13. TYLENOL [Concomitant]
     Active Substance: ACETAMINOPHEN

REACTIONS (13)
  - Glycosylated haemoglobin increased [Unknown]
  - Dysphagia [Not Recovered/Not Resolved]
  - Blood pressure diastolic increased [Recovering/Resolving]
  - Alopecia [Not Recovered/Not Resolved]
  - Oral discomfort [Not Recovered/Not Resolved]
  - Depression [Unknown]
  - Fatigue [Not Recovered/Not Resolved]
  - Headache [Not Recovered/Not Resolved]
  - Diarrhoea [Recovered/Resolved]
  - Bone lesion [Not Recovered/Not Resolved]
  - Hepatic enzyme increased [Not Recovered/Not Resolved]
  - Constipation [Recovering/Resolving]
  - Off label use [Unknown]

NARRATIVE: CASE EVENT DATE: 20231005
